FAERS Safety Report 7401145-4 (Version None)
Quarter: 2011Q2

REPORT INFORMATION
  Report Type: 
  Country: None (occurrence: None)
  Receive Date: 20110407
  Receipt Date: 20110331
  Transmission Date: 20111010
  Serious: Yes (Death, Hospitalization, Other)
  Sender: FDA-Public Use
  Company Number: US-PFIZER INC-2011004731

PATIENT
  Sex: Male

DRUGS (6)
  1. TRAZODONE HCL [Suspect]
     Indication: ANXIETY
     Dosage: 50 MG, UNK
     Dates: start: 20100925, end: 20101001
  2. VERAPAMIL HYDROCHLORIDE [Concomitant]
     Indication: HYPERTENSION
     Dosage: 180 MG, UNK
  3. MIRTAZAPINE [Suspect]
     Dosage: UNK
     Dates: start: 20091022, end: 20101120
  4. GABAPENTIN [Suspect]
     Dosage: 300 MG, 3X/DAY
     Route: 048
     Dates: start: 20100925, end: 20100930
  5. BUSPIRONE [Suspect]
     Indication: ANXIETY
     Dosage: UNK
     Route: 048
     Dates: start: 20091022, end: 20101120
  6. HYDROXYZINE PAMOATE [Suspect]
     Dosage: 50 MG, 2X/DAY
     Route: 048
     Dates: start: 20101021

REACTIONS (14)
  - COMPLETED SUICIDE [None]
  - CHEST PAIN [None]
  - RESTLESSNESS [None]
  - ABDOMINAL DISCOMFORT [None]
  - DEPRESSION [None]
  - ANXIETY [None]
  - HEADACHE [None]
  - NAUSEA [None]
  - INSOMNIA [None]
  - IRRITABLE BOWEL SYNDROME [None]
  - DECREASED APPETITE [None]
  - FEAR OF WEIGHT GAIN [None]
  - DYSPEPSIA [None]
  - FATIGUE [None]
